FAERS Safety Report 7952620-5 (Version None)
Quarter: 2011Q4

REPORT INFORMATION
  Report Type: 
  Country: None (occurrence: None)
  Receive Date: 20111201
  Receipt Date: 20111122
  Transmission Date: 20120403
  Serious: Yes (Other)
  Sender: FDA-Public Use
  Company Number: US-JNJFOC-20110904185

PATIENT
  Sex: Male
  Weight: 92.99 kg

DRUGS (8)
  1. PLAVIX [Suspect]
     Dates: start: 20110901, end: 20110906
  2. CARVEDILOL [Concomitant]
     Indication: HYPERTENSION
  3. LANSOPRAZOLE [Concomitant]
     Indication: GASTROOESOPHAGEAL REFLUX DISEASE
  4. VYTORIN [Concomitant]
     Indication: BLOOD CHOLESTEROL
  5. DIOVAN [Concomitant]
     Indication: HYPERTENSION
  6. ASPIRIN [Concomitant]
     Indication: PROPHYLAXIS
  7. XARELTO [Suspect]
     Indication: THROMBOSIS PROPHYLAXIS
     Route: 048
     Dates: start: 20110829, end: 20111002
  8. PLAVIX [Suspect]
     Indication: CEREBROVASCULAR ACCIDENT PROPHYLAXIS
     Dates: end: 20110822

REACTIONS (2)
  - SKIN HAEMORRHAGE [None]
  - ARTHRITIS [None]
